FAERS Safety Report 6859966-2 (Version None)
Quarter: 2010Q3

REPORT INFORMATION
  Report Type: 
  Country: None (occurrence: None)
  Receive Date: 20100720
  Receipt Date: 20100716
  Transmission Date: 20110219
  Serious: Yes (Death)
  Sender: FDA-Public Use
  Company Number: PHFR2010GB00905

PATIENT
  Sex: Male
  Weight: 148.5 kg

DRUGS (8)
  1. CLOZARIL [Suspect]
     Indication: SCHIZOPHRENIA
     Dosage: UNK
     Dates: start: 20030705
  2. CLOZARIL [Suspect]
     Dosage: 600MG
     Route: 048
  3. ESOMEPRAZOLE MAGNESIUM [Concomitant]
     Indication: HYPERTRIGLYCERIDAEMIA
     Dosage: 40MG DAILY
     Dates: start: 20060101
  4. METHADONE HCL [Concomitant]
     Indication: DRUG DEPENDENCE
     Dosage: 68MG DAILY
  5. SENOKOT [Concomitant]
     Indication: CONSTIPATION
     Dosage: UNK
     Route: 048
     Dates: start: 20060101
  6. AMISULPRIDE [Concomitant]
     Indication: SCHIZOPHRENIA
     Dosage: 400MG DAILY
     Route: 048
     Dates: start: 20060101
  7. FLUOXETINE HCL [Concomitant]
     Indication: DEPRESSION
     Dosage: 20MG DAILY
     Route: 048
     Dates: start: 20060101
  8. HYOSCINE HBR HYT [Concomitant]
     Dosage: 450MCG DAILY
     Route: 048

REACTIONS (2)
  - BLOOD TRIGLYCERIDES INCREASED [None]
  - RESPIRATORY FAILURE [None]
